FAERS Safety Report 7669251-7 (Version None)
Quarter: 2011Q3

REPORT INFORMATION
  Report Type: 
  Country: None (occurrence: None)
  Receive Date: 20110808
  Receipt Date: 20110730
  Transmission Date: 20111222
  Serious: Yes (Other)
  Sender: FDA-Public Use
  Company Number: PHHY2010US57573

PATIENT
  Sex: Female

DRUGS (2)
  1. RECLAST [Suspect]
     Indication: HYPOVITAMINOSIS
  2. RECLAST [Suspect]
     Indication: OSTEOPOROSIS
     Dosage: UNK UKN, UNK
     Route: 042

REACTIONS (6)
  - INJECTION SITE NODULE [None]
  - PAIN [None]
  - MULTIPLE MYELOMA [None]
  - INFLUENZA LIKE ILLNESS [None]
  - MALAISE [None]
  - GAIT DISTURBANCE [None]
